FAERS Safety Report 17478168 (Version 1)
Quarter: 2020Q1

REPORT INFORMATION
  Report Type: Spontaneous
  Country: US (occurrence: US)
  Receive Date: 20200229
  Receipt Date: 20200229
  Transmission Date: 20200409
  Serious: Yes (Other)
  Sender: FDA-Public Use
  Company Number: US-AMGEN-USASP2020031246

PATIENT
  Sex: Female

DRUGS (17)
  1. ZITHROMAX [Concomitant]
     Active Substance: AZITHROMYCIN DIHYDRATE
     Dosage: UNK
  2. CIPROFLOXACIN HCL [Concomitant]
     Active Substance: CIPROFLOXACIN HYDROCHLORIDE
     Dosage: UNK
  3. CLONAZEPAM. [Concomitant]
     Active Substance: CLONAZEPAM
     Dosage: UNK
  4. AZITHROMYCIN ANHYDROUS. [Concomitant]
     Active Substance: AZITHROMYCIN ANHYDROUS
     Dosage: 250 MILLIGRAM
  5. MONTELUKAST SODIUM. [Concomitant]
     Active Substance: MONTELUKAST SODIUM
     Dosage: UNK
  6. NASONEX [Concomitant]
     Active Substance: MOMETASONE FUROATE
     Dosage: UNK
  7. AMOXICILLIN. [Concomitant]
     Active Substance: AMOXICILLIN
     Dosage: 250 MILLIGRAM
  8. ESCITALOPRAM OXALATE. [Concomitant]
     Active Substance: ESCITALOPRAM OXALATE
     Dosage: UNK
  9. DIOVAN [Concomitant]
     Active Substance: VALSARTAN
     Dosage: UNK
  10. FLUTICASONE PROPIONATE. [Concomitant]
     Active Substance: FLUTICASONE PROPIONATE
     Dosage: UNK
  11. ENBREL [Suspect]
     Active Substance: ETANERCEPT
     Indication: JUVENILE IDIOPATHIC ARTHRITIS
     Dosage: 50 MILLIGRAM, QWK
     Route: 058
  12. ADVAIR HFA [Concomitant]
     Active Substance: FLUTICASONE PROPIONATE\SALMETEROL XINAFOATE
     Dosage: UNK
  13. VENTOLIN HFA [Concomitant]
     Active Substance: ALBUTEROL SULFATE
     Dosage: UNK
  14. PROMETHAZINE - CODEINE [CODEINE PHOSPHATE;PROMETHAZINE HYDROCHLORIDE] [Concomitant]
     Dosage: UNK
  15. INDAPAMIDE. [Concomitant]
     Active Substance: INDAPAMIDE
     Dosage: UNK
  16. MINOCYCLINE HCL [Concomitant]
     Active Substance: MINOCYCLINE HYDROCHLORIDE
     Dosage: UNK
  17. TRAMADOL HCL [Concomitant]
     Active Substance: TRAMADOL HYDROCHLORIDE
     Dosage: UNK

REACTIONS (1)
  - Juvenile idiopathic arthritis [Unknown]
